FAERS Safety Report 9397646 (Version 5)
Quarter: 2014Q2

REPORT INFORMATION
  Report Type: Report from Study
  Country: KR (occurrence: KR)
  Receive Date: 20130712
  Receipt Date: 20140519
  Transmission Date: 20141212
  Serious: Yes (Death)
  Sender: FDA-Public Use
  Company Number: KR-CELGENEUS-286-50794-13070582

PATIENT
  Age: 77 Year
  Sex: Male
  Weight: 58.3 kg

DRUGS (12)
  1. VIDAZA [Suspect]
     Indication: REFRACTORY ANAEMIA WITH AN EXCESS OF BLASTS
     Dosage: 123 MILLIGRAM
     Route: 058
     Dates: start: 20111130
  2. VIDAZA [Suspect]
     Dosage: 121.5 MILLIGRAM
     Route: 058
     Dates: start: 20120129, end: 20120130
  3. ZOVIRAX [Concomitant]
     Indication: PROPHYLAXIS
     Dosage: 400 MILLIGRAM
     Route: 048
     Dates: start: 20111128, end: 20120131
  4. CIROK [Concomitant]
     Indication: PROPHYLAXIS
     Dosage: 1000 MILLIGRAM
     Route: 048
     Dates: start: 20111205, end: 20120131
  5. LASIX [Concomitant]
     Indication: HYPERTENSION
     Dosage: 20 MILLIGRAM
     Route: 048
     Dates: start: 20111126, end: 20120131
  6. LASIX [Concomitant]
     Dosage: 280 MILLIGRAM
     Route: 041
     Dates: start: 20120131
  7. DIOVAN [Concomitant]
     Indication: HYPERTENSION
     Dosage: 80 MILLIGRAM
     Route: 048
     Dates: start: 20111126, end: 20120109
  8. RED BLOOD CELLS [Concomitant]
     Indication: PRODUCT USED FOR UNKNOWN INDICATION
     Route: 041
     Dates: start: 20120130, end: 20120130
  9. MAXIPIME [Concomitant]
     Indication: PRODUCT USED FOR UNKNOWN INDICATION
     Dosage: 2 GRAM
     Route: 041
     Dates: start: 20120127, end: 20120130
  10. FLAGYL [Concomitant]
     Indication: PRODUCT USED FOR UNKNOWN INDICATION
     Dosage: 1500 MILLIGRAM
     Route: 041
     Dates: start: 20120127, end: 20120130
  11. TRIDOL [Concomitant]
     Indication: PRODUCT USED FOR UNKNOWN INDICATION
     Dosage: 100 MILLIGRAM
     Route: 041
     Dates: start: 20120127, end: 20120130
  12. DOPAMINE [Concomitant]
     Indication: PRODUCT USED FOR UNKNOWN INDICATION
     Dosage: 800 MILLIGRAM
     Route: 041
     Dates: start: 20120131

REACTIONS (1)
  - Metabolic acidosis [Fatal]
